FAERS Safety Report 24241615 (Version 1)
Quarter: 2024Q3

REPORT INFORMATION
  Report Type: Spontaneous
  Country: DK (occurrence: DK)
  Receive Date: 20240823
  Receipt Date: 20240823
  Transmission Date: 20241017
  Serious: Yes (Other)
  Sender: ROCHE
  Company Number: None

PATIENT
  Age: 78 Year
  Sex: Female

DRUGS (1)
  1. TECENTRIQ [Suspect]
     Active Substance: ATEZOLIZUMAB
     Indication: Non-small cell lung cancer
     Route: 042
     Dates: start: 20240202

REACTIONS (3)
  - Immune-mediated thyroiditis [Unknown]
  - Myxoedema [Not Recovered/Not Resolved]
  - Immune-mediated hyperthyroidism [Recovered/Resolved]

NARRATIVE: CASE EVENT DATE: 20240301
